FAERS Safety Report 16533923 (Version 2)
Quarter: 2020Q1

REPORT INFORMATION
  Report Type: Spontaneous
  Country: GB (occurrence: GB)
  Receive Date: 20190705
  Receipt Date: 20200321
  Transmission Date: 20200409
  Serious: Yes (Other)
  Sender: FDA-Public Use
  Company Number: GB-TEVA-2019-GB-1018282

PATIENT
  Age: 87 Year
  Sex: Male

DRUGS (2)
  1. ITRACONAZOLE. [Interacting]
     Active Substance: ITRACONAZOLE
     Route: 065
  2. SIMVASTATIN. [Suspect]
     Active Substance: SIMVASTATIN
     Route: 065

REACTIONS (2)
  - Myositis [Unknown]
  - Labelled drug-drug interaction medication error [Unknown]

NARRATIVE: CASE EVENT DATE: 20181010
